FAERS Safety Report 4802665-9 (Version None)
Quarter: 2005Q4

REPORT INFORMATION
  Report Type: 
  Country: None (occurrence: None)
  Receive Date: 20051014
  Receipt Date: 20050629
  Transmission Date: 20060501
  Serious: Yes (Other)
  Sender: FDA-Public Use
  Company Number: 2005094698

PATIENT
  Age: 44 Year
  Sex: Male
  Weight: 81.6475 kg

DRUGS (5)
  1. NEURONTIN [Suspect]
     Indication: SKIN BURNING SENSATION
     Dosage: ORAL
     Route: 048
     Dates: start: 20040101, end: 20040601
  2. GABITRIL [Suspect]
     Indication: ILL-DEFINED DISORDER
     Dates: start: 20040101
  3. KLONOPIN [Concomitant]
  4. AMBIEN [Concomitant]
  5. WELLBUTRIN [Concomitant]

REACTIONS (2)
  - DRUG INEFFECTIVE [None]
  - SUICIDAL IDEATION [None]
